FAERS Safety Report 5713257-1 (Version None)
Quarter: 2008Q2

REPORT INFORMATION
  Report Type: 
  Country: None (occurrence: None)
  Receive Date: 20080422
  Receipt Date: 20080410
  Transmission Date: 20081010
  Serious: Yes (Hospitalization)
  Sender: FDA-Public Use
  Company Number: AU-PFIZER INC-2008032272

PATIENT
  Age: 41 Year
  Sex: Male

DRUGS (3)
  1. CHAMPIX [Suspect]
     Indication: SMOKER
     Route: 048
  2. METHADONE HYDROCHLORIDE [Concomitant]
     Route: 048
  3. TEMAZE [Concomitant]
     Route: 048

REACTIONS (6)
  - DIZZINESS [None]
  - MUSCLE SPASMS [None]
  - MYOPIA [None]
  - NAUSEA [None]
  - ORTHOSTATIC HYPOTENSION [None]
  - PAIN IN EXTREMITY [None]
